FAERS Safety Report 13793161 (Version 1)
Quarter: 2017Q3

REPORT INFORMATION
  Report Type: Spontaneous
  Country: US (occurrence: US)
  Receive Date: 20170726
  Receipt Date: 20170726
  Transmission Date: 20171127
  Serious: Yes (Other)
  Sender: FDA-Public Use
  Company Number: US-APOPHARMA USA, INC.-2017AP015822

PATIENT

DRUGS (6)
  1. ALKERAN [Suspect]
     Active Substance: MELPHALAN
     Indication: PLASMA CELL MYELOMA
     Dosage: 200 MG/M2, SINGLE
     Route: 042
  2. PHENYTOIN. [Concomitant]
     Active Substance: PHENYTOIN
     Indication: SUPPORTIVE CARE
     Dosage: 300 MG, QD
     Route: 065
  3. CALCIUM [Concomitant]
     Active Substance: CALCIUM
     Indication: PROPHYLAXIS
     Route: 048
  4. GLUTAMINE [Concomitant]
     Active Substance: GLUTAMINE
     Indication: PROPHYLAXIS
     Route: 048
  5. DEXAMETHASONE. [Concomitant]
     Active Substance: DEXAMETHASONE
     Indication: SUPPORTIVE CARE
     Dosage: 8 MG, BID
     Route: 042
  6. PALIFERMIN [Concomitant]
     Active Substance: PALIFERMIN
     Indication: PROPHYLAXIS
     Route: 048

REACTIONS (1)
  - Myelodysplastic syndrome [Unknown]
